FAERS Safety Report 8560451-0 (Version None)
Quarter: 2012Q3

REPORT INFORMATION
  Report Type: 
  Country: None (occurrence: None)
  Receive Date: 20120802
  Receipt Date: 20120725
  Transmission Date: 20120928
  Serious: Yes (Other)
  Sender: FDA-Public Use
  Company Number: US-FRI-1000037421

PATIENT
  Age: 48 Year
  Sex: Female

DRUGS (3)
  1. VIIBRYD [Suspect]
  2. HALCION [Concomitant]
  3. LYRICA [Suspect]

REACTIONS (5)
  - DRUG INTERACTION [None]
  - FEELING HOT [None]
  - MUSCLE TWITCHING [None]
  - TREMOR [None]
  - THROMBOSIS [None]
